FAERS Safety Report 26104609 (Version 1)
Quarter: 2025Q4

REPORT INFORMATION
  Report Type: Spontaneous
  Country: EU (occurrence: EU)
  Receive Date: 20251130
  Receipt Date: 20251130
  Transmission Date: 20260118
  Serious: Yes (Other)
  Sender: AMGEN
  Company Number: None

PATIENT
  Age: 35 Year
  Sex: Female

DRUGS (3)
  1. ENBREL [Suspect]
     Active Substance: ETANERCEPT
     Indication: Rheumatoid arthritis
     Dosage: UNK UNK, WEEKLY
     Route: 058
     Dates: start: 20251016
  2. Sumatriptan aurobindo [Concomitant]
     Indication: Migraine
     Dosage: 50 MG, 2X/DAY
     Route: 065
     Dates: start: 202006
  3. FOLIC ACID [Concomitant]
     Active Substance: FOLIC ACID
     Indication: Vitamin supplementation
     Dosage: 5 MG, 2X/WEEK (ADMINISTERED EVERY MONDAY AND THURSDAY)
     Route: 065
     Dates: start: 202310

REACTIONS (1)
  - Abortion spontaneous [Recovered/Resolved]

NARRATIVE: CASE EVENT DATE: 20251001
